FAERS Safety Report 4429084-1 (Version None)
Quarter: 2004Q3

REPORT INFORMATION
  Report Type: 
  Country: None (occurrence: None)
  Receive Date: 20040726
  Receipt Date: 20040402
  Transmission Date: 20050211
  Serious: No
  Sender: FDA-Public Use
  Company Number: USA040361796

PATIENT
  Age: 72 Year
  Sex: Female
  Weight: 70 kg

DRUGS (8)
  1. FORTEO [Suspect]
     Indication: OSTEOPOROSIS
     Dosage: 20 UG/1 DAY
     Dates: start: 20040305
  2. PRAVACHOL [Concomitant]
  3. SEREVENT [Concomitant]
  4. FLOMAX (MONTELUKAST SODIUM) [Concomitant]
  5. SINGULAIR [Concomitant]
  6. MULTIVITAMIN [Concomitant]
  7. CITRACAL (CALCIUM CITRATE) [Concomitant]
  8. ACTONEL [Concomitant]

REACTIONS (6)
  - INJECTION SITE ERYTHEMA [None]
  - INJECTION SITE HAEMORRHAGE [None]
  - INJECTION SITE PAIN [None]
  - NAUSEA [None]
  - NERVOUSNESS [None]
  - TREMOR [None]
